FAERS Safety Report 7244163-1 (Version None)
Quarter: 2011Q1

REPORT INFORMATION
  Report Type: 
  Country: None (occurrence: None)
  Receive Date: 20110125
  Receipt Date: 20110118
  Transmission Date: 20110831
  Serious: Yes (Other)
  Sender: FDA-Public Use
  Company Number: US-PFIZER INC-2010008606

PATIENT
  Age: 60 Year
  Sex: Female

DRUGS (6)
  1. EFFEXOR [Suspect]
     Indication: DEPRESSION
     Dosage: UNK
     Dates: start: 20070101
  2. EFFEXOR [Suspect]
     Indication: MENTAL DISORDER
  3. WELLBUTRIN [Suspect]
     Indication: DEPRESSION
     Dosage: UNK
     Dates: start: 20070101
  4. AVONEX [Suspect]
     Indication: MULTIPLE SCLEROSIS
     Dosage: 30 UG, WEEKLY
     Route: 030
     Dates: start: 20070101, end: 20091101
  5. LYRICA [Suspect]
     Dosage: UNK
  6. WELLBUTRIN [Suspect]
     Indication: MENTAL DISORDER

REACTIONS (9)
  - PNEUMONIA [None]
  - SUICIDE ATTEMPT [None]
  - MEMORY IMPAIRMENT [None]
  - CYSTITIS [None]
  - PANIC ATTACK [None]
  - H1N1 INFLUENZA [None]
  - INTENTIONAL OVERDOSE [None]
  - APATHY [None]
  - APHASIA [None]
